FAERS Safety Report 15665764 (Version 1)
Quarter: 2018Q4

REPORT INFORMATION
  Report Type: Spontaneous
  Country: FR (occurrence: FR)
  Receive Date: 20181128
  Receipt Date: 20181128
  Transmission Date: 20190205
  Serious: Yes (Other)
  Sender: FDA-Public Use
  Company Number: PHHY2018FR161215

PATIENT
  Sex: Male

DRUGS (2)
  1. ETANERCEPT [Suspect]
     Active Substance: ETANERCEPT
     Indication: FOETAL EXPOSURE DURING PREGNANCY
     Dosage: MATERNAL DOSE: 25 MG, BIW
     Route: 064
  2. PREDNISONE. [Suspect]
     Active Substance: PREDNISONE
     Indication: FOETAL EXPOSURE DURING PREGNANCY
     Dosage: MATERNAL DOSE: 5MG, QD
     Route: 064

REACTIONS (5)
  - Adrenogenital syndrome [Recovered/Resolved]
  - Foetal exposure during pregnancy [Unknown]
  - Escherichia urinary tract infection [Recovered/Resolved]
  - Urinary tract infection neonatal [Recovered/Resolved]
  - Jaundice neonatal [Recovered/Resolved]
